FAERS Safety Report 12132095 (Version 3)
Quarter: 2017Q2

REPORT INFORMATION
  Report Type: Spontaneous
  Country: US (occurrence: US)
  Receive Date: 20160301
  Receipt Date: 20170404
  Transmission Date: 20170829
  Serious: Yes (Other)
  Sender: FDA-Public Use
  Company Number: US-JNJFOC-20160207888

PATIENT
  Sex: Female
  Weight: 62.6 kg

DRUGS (11)
  1. LEVAQUIN [Suspect]
     Active Substance: LEVOFLOXACIN
     Indication: PSEUDOMONAS INFECTION
     Dosage: 750 MG/150 ML
     Route: 042
     Dates: start: 20100208, end: 20100218
  2. LEVAQUIN [Suspect]
     Active Substance: LEVOFLOXACIN
     Indication: EXTRADURAL ABSCESS
     Dosage: 750 MG/150 ML
     Route: 042
     Dates: start: 20100208, end: 20100218
  3. CIPRO [Suspect]
     Active Substance: CIPROFLOXACIN HYDROCHLORIDE
     Indication: PRODUCT USED FOR UNKNOWN INDICATION
     Route: 048
  4. MORPHINE [Concomitant]
     Active Substance: MORPHINE
     Indication: SURGERY
     Route: 065
     Dates: start: 2009, end: 2010
  5. LEVAQUIN [Suspect]
     Active Substance: LEVOFLOXACIN
     Indication: EXTRADURAL ABSCESS
     Route: 042
     Dates: start: 201001
  6. LEVAQUIN [Suspect]
     Active Substance: LEVOFLOXACIN
     Indication: PRODUCT USED FOR UNKNOWN INDICATION
     Route: 048
  7. MOXIFLOXACIN. [Suspect]
     Active Substance: MOXIFLOXACIN
     Indication: PRODUCT USED FOR UNKNOWN INDICATION
     Route: 048
  8. LEVAQUIN [Suspect]
     Active Substance: LEVOFLOXACIN
     Indication: PSEUDOMONAS INFECTION
     Route: 042
     Dates: start: 201001
  9. PREDNISONE. [Suspect]
     Active Substance: PREDNISONE
     Indication: PRODUCT USED FOR UNKNOWN INDICATION
     Route: 065
     Dates: start: 2009, end: 2013
  10. HYDROCODONE [Concomitant]
     Active Substance: HYDROCODONE
     Indication: PAIN
     Route: 065
     Dates: start: 2005, end: 2010
  11. CEPIME [Concomitant]
     Indication: INFECTION
     Dates: start: 2010

REACTIONS (1)
  - Neuropathy peripheral [Not Recovered/Not Resolved]

NARRATIVE: CASE EVENT DATE: 2010
